FAERS Safety Report 13405059 (Version 1)
Quarter: 2017Q2

REPORT INFORMATION
  Report Type: Spontaneous
  Country: US (occurrence: US)
  Receive Date: 20170405
  Receipt Date: 20170405
  Transmission Date: 20170830
  Serious: Yes (Hospitalization, Disabling, Other)
  Sender: FDA-Public Use
  Company Number: None

PATIENT
  Sex: Male

DRUGS (1)
  1. TRIAMCINOLONE MOXI [Suspect]
     Active Substance: MOXIFLOXACIN\TRIAMCINOLONE
     Indication: INFECTION PROPHYLAXIS
     Dosage: QUANTITY:1 INJECTION(S);?

REACTIONS (2)
  - Blindness [None]
  - Retinal toxicity [None]

NARRATIVE: CASE EVENT DATE: 20170307
